FAERS Safety Report 10133455 (Version 1)
Quarter: 2014Q2

REPORT INFORMATION
  Report Type: Spontaneous
  Country: US (occurrence: US)
  Receive Date: 20140428
  Receipt Date: 20140428
  Transmission Date: 20141212
  Serious: No
  Sender: FDA-Public Use
  Company Number: US-PFIZER INC-2014115230

PATIENT
  Age: 60 Year
  Sex: Female
  Weight: 63.49 kg

DRUGS (2)
  1. LYRICA [Suspect]
     Indication: FIBROMYALGIA
     Dosage: 25 MG, 2X/DAY
     Dates: start: 20131122, end: 201403
  2. VITAMIN D [Concomitant]
     Indication: RENAL DISORDER
     Dosage: UNK

REACTIONS (4)
  - Oral pruritus [Not Recovered/Not Resolved]
  - Oral disorder [Not Recovered/Not Resolved]
  - Dysgeusia [Not Recovered/Not Resolved]
  - Oropharyngeal discomfort [Not Recovered/Not Resolved]
